FAERS Safety Report 20691453 (Version 1)
Quarter: 2022Q2

REPORT INFORMATION
  Report Type: Spontaneous
  Country: US (occurrence: US)
  Receive Date: 20220408
  Receipt Date: 20220408
  Transmission Date: 20220721
  Serious: Yes (Other)
  Sender: FDA-Public Use
  Company Number: US-TEVA-2022-US-2023522

PATIENT
  Age: 47 Year
  Sex: Female
  Weight: 66.68 kg

DRUGS (3)
  1. ADIPEX-P [Suspect]
     Active Substance: PHENTERMINE HYDROCHLORIDE
     Indication: Asthenia
     Dosage: 37.5 MILLIGRAM DAILY;
     Route: 065
  2. ADIPEX-P [Suspect]
     Active Substance: PHENTERMINE HYDROCHLORIDE
     Indication: Hypothyroidism
     Dosage: 18.75 MILLIGRAM DAILY;
     Route: 065
  3. LEVOTHYROXINE [Concomitant]
     Active Substance: LEVOTHYROXINE
     Dates: start: 202103

REACTIONS (3)
  - Drug dependence [Unknown]
  - Tardive dyskinesia [Unknown]
  - Tic [Unknown]
